FAERS Safety Report 4993928-5 (Version None)
Quarter: 2006Q2

REPORT INFORMATION
  Report Type: 
  Country: None (occurrence: None)
  Receive Date: 20060505
  Receipt Date: 20060404
  Transmission Date: 20061013
  Serious: Yes (Other)
  Sender: FDA-Public Use
  Company Number: 2006UW05926

PATIENT
  Age: 65 Year
  Sex: Male
  Weight: 70.3 kg

DRUGS (8)
  1. TOPROL-XL [Suspect]
     Indication: HYPERTENSION
     Route: 048
     Dates: start: 20060424
  2. TOPROL-XL [Suspect]
     Route: 048
  3. TOPROL-XL [Suspect]
     Route: 048
     Dates: start: 20051101
  4. LIPITOR [Suspect]
     Dates: end: 20060301
  5. ALTACE [Concomitant]
  6. PLAVIX [Concomitant]
  7. ACETYLSALICYLIC ACID SRT [Concomitant]
  8. ALPRAZOLAM [Concomitant]
     Route: 048

REACTIONS (8)
  - CHILLS [None]
  - FACIAL PALSY [None]
  - HYPERHIDROSIS [None]
  - HYPERKINESIA [None]
  - MOTOR DYSFUNCTION [None]
  - PERIPHERAL COLDNESS [None]
  - TINNITUS [None]
  - TREMOR [None]
